FAERS Safety Report 13068175 (Version 2)
Quarter: 2017Q1

REPORT INFORMATION
  Report Type: Spontaneous
  Country: US (occurrence: US)
  Receive Date: 20161228
  Receipt Date: 20170104
  Transmission Date: 20170428
  Serious: Yes (Death)
  Sender: FDA-Public Use
  Company Number: US-ROCHE-1872679

PATIENT
  Age: 94 Year
  Sex: Male

DRUGS (1)
  1. ERIVEDGE [Suspect]
     Active Substance: VISMODEGIB
     Indication: BASAL CELL CARCINOMA
     Route: 048
     Dates: start: 20150427, end: 20161101

REACTIONS (6)
  - Renal impairment [Fatal]
  - Sepsis [Fatal]
  - Urinary tract infection [Fatal]
  - Intestinal perforation [Fatal]
  - Intestinal ischaemia [Fatal]
  - Sepsis [Fatal]

NARRATIVE: CASE EVENT DATE: 20161101
